FAERS Safety Report 9374700 (Version 7)
Quarter: 2016Q1

REPORT INFORMATION
  Report Type: Report from Study
  Country: JP (occurrence: JP)
  Receive Date: 20130628
  Receipt Date: 20160216
  Transmission Date: 20160526
  Serious: Yes (Life-Threatening, Hospitalization, Disabling)
  Sender: FDA-Public Use
  Company Number: JP-PFIZER INC-2013188904

PATIENT
  Age: 69 Year
  Sex: Female
  Weight: 50 kg

DRUGS (27)
  1. HUMALOG [Concomitant]
     Active Substance: INSULIN LISPRO
     Dosage: 10 UNIT, 3X DAY
     Dates: start: 20121113
  2. LOXONIN [Concomitant]
     Active Substance: LOXOPROFEN SODIUM
     Dosage: 50 MG, AS NEEDED
     Route: 062
     Dates: start: 20121125
  3. MEDICON [Concomitant]
     Active Substance: DEXTROMETHORPHAN HYDROBROMIDE
     Dosage: 15 MG, 3X/DAY
     Route: 048
     Dates: start: 20120424, end: 20121206
  4. DIHYDROCODEINE PHOSPHATE [Concomitant]
     Active Substance: DIHYDROCODEINE PHOSPHATE
     Dosage: 10 MG, AS NEEDED
     Route: 048
     Dates: start: 20120504, end: 20121126
  5. NOVAMIN [Concomitant]
     Active Substance: PROCHLORPERAZINE MALEATE
     Dosage: 5 MG, AS NEEDED
     Route: 048
     Dates: start: 20120505
  6. URSO [Concomitant]
     Active Substance: URSODIOL
     Dosage: 100 MG, 3X/DAY
     Route: 048
     Dates: start: 20121204
  7. JANUVIA [Concomitant]
     Active Substance: SITAGLIPTIN PHOSPHATE
     Dosage: 100 MG, 1X/DAY
     Route: 048
     Dates: start: 20121211, end: 20121226
  8. XALKORI [Suspect]
     Active Substance: CRIZOTINIB
     Indication: NON-SMALL CELL LUNG CANCER
     Dosage: 250 MG, 2X/DAY
     Route: 048
     Dates: start: 20121030, end: 20121116
  9. XALKORI [Suspect]
     Active Substance: CRIZOTINIB
     Dosage: 250 MG, 2X/DAY
     Route: 048
     Dates: start: 20121204, end: 20130103
  10. DECADRON [Suspect]
     Active Substance: DEXAMETHASONE
     Dosage: 0.5 MG/DAY
     Dates: start: 20121205
  11. PERAPRIN [Concomitant]
     Active Substance: METOCLOPRAMIDE
     Dosage: 10 MG, 3X/DAY
     Route: 048
     Dates: start: 20070921
  12. XALKORI [Suspect]
     Active Substance: CRIZOTINIB
     Dosage: 250 MG, 2X/DAY
     Route: 048
     Dates: start: 20130525, end: 20130829
  13. OXYCONTIN [Concomitant]
     Active Substance: OXYCODONE HYDROCHLORIDE
     Dosage: 5 MG, 2X/DAY
     Route: 048
     Dates: start: 20120927, end: 20121116
  14. GASTER [Concomitant]
     Active Substance: FAMOTIDINE
     Dosage: 20 MG, 2X/DAY
     Route: 048
     Dates: start: 20121005, end: 20121203
  15. WYPAX [Concomitant]
     Active Substance: LORAZEPAM
     Dosage: 0.5 MG, 3X/DAY
     Route: 048
     Dates: start: 20121121, end: 20130404
  16. CRESTOR [Concomitant]
     Active Substance: ROSUVASTATIN CALCIUM
     Dosage: 2.5 MG, 1X/DAY
     Route: 048
     Dates: start: 20121216
  17. GASMOTIN [Concomitant]
     Active Substance: MOSAPRIDE CITRATE
     Dosage: 5 MG, 3X/DAY
     Route: 048
     Dates: start: 20121018
  18. ASTOMIN [Concomitant]
     Active Substance: DIMEMORFAN
     Dosage: 20 MG, 3X/DAY
     Route: 048
     Dates: start: 20080124, end: 20121121
  19. MUCODYNE [Concomitant]
     Active Substance: CARBOCYSTEINE
     Dosage: 500 MG, 3X/DAY
     Route: 048
     Dates: start: 20121026, end: 20121101
  20. LANSOPRAZOLE. [Concomitant]
     Active Substance: LANSOPRAZOLE
     Dosage: 30 MG, 1X/DAY
     Route: 048
     Dates: start: 20121204, end: 20130209
  21. MYSLEE [Concomitant]
     Active Substance: ZOLPIDEM TARTRATE
     Dosage: 2.5 MG, AS NEEDED
     Route: 048
     Dates: start: 20121122
  22. XALKORI [Suspect]
     Active Substance: CRIZOTINIB
     Dosage: 250 MG, 2X/DAY
     Route: 048
     Dates: start: 20130207, end: 20130515
  23. DECADRON [Suspect]
     Active Substance: DEXAMETHASONE
     Dosage: 1 MG, 2X/DAY
     Route: 048
     Dates: start: 20121108, end: 20121124
  24. DECADRON [Suspect]
     Active Substance: DEXAMETHASONE
     Dosage: 1 MG/DAY
     Dates: start: 20121127, end: 20121204
  25. LANTUS [Concomitant]
     Active Substance: INSULIN GLARGINE
     Dosage: 20 TO 30 UNITS
     Dates: start: 20121022, end: 20121213
  26. HALCION [Concomitant]
     Active Substance: TRIAZOLAM
     Dosage: 0.25 MG, AS NEEDED
     Route: 048
     Dates: start: 20121108, end: 20121121
  27. NOVORIN [Concomitant]
     Dosage: 5 TO 26 UNITS ONCE A DAY
     Dates: start: 20121213

REACTIONS (5)
  - Venous thrombosis limb [Recovering/Resolving]
  - Acute respiratory distress syndrome [Recovered/Resolved with Sequelae]
  - Pulmonary embolism [Recovering/Resolving]
  - Pneumonia bacterial [Recovered/Resolved]
  - Vomiting [Recovering/Resolving]

NARRATIVE: CASE EVENT DATE: 20121115
